FAERS Safety Report 6335610-8 (Version None)
Quarter: 2009Q3

REPORT INFORMATION
  Report Type: 
  Country: None (occurrence: None)
  Receive Date: 20090831
  Receipt Date: 20090827
  Transmission Date: 20100115
  Serious: Yes (Death)
  Sender: FDA-Public Use
  Company Number: KE-GILEAD-2009-0023963

PATIENT
  Age: 56 Year
  Sex: Male
  Weight: 44.5 kg

DRUGS (4)
  1. TRUVADA [Suspect]
     Indication: HIV INFECTION
     Route: 048
     Dates: start: 20090609, end: 20090617
  2. EFAVIRENZ [Suspect]
     Indication: HIV INFECTION
     Route: 048
     Dates: start: 20090609, end: 20090617
  3. RIFINA [Concomitant]
  4. SEPTRIN [Concomitant]

REACTIONS (1)
  - PERITONITIS [None]
